FAERS Safety Report 18928194 (Version 1)
Quarter: 2021Q1

REPORT INFORMATION
  Report Type: Spontaneous
  Country: US (occurrence: US)
  Receive Date: 20210223
  Receipt Date: 20210223
  Transmission Date: 20210420
  Serious: No
  Sender: FDA-Public Use
  Company Number: US-CURIUM-1998000034

PATIENT

DRUGS (2)
  1. SODIUM PERTECHNETATE TC 99M [Suspect]
     Active Substance: TECHNETIUM TC-99M SODIUM PERTECHNETATE
     Indication: MULTIPLE GATED ACQUISITION SCAN
     Route: 051
     Dates: start: 19980605, end: 19980605
  2. ULTRATAG RBC [Suspect]
     Active Substance: TECHNETIUM TC-99M RED BLOOD CELLS
     Indication: MULTIPLE GATED ACQUISITION SCAN
     Route: 051
     Dates: start: 19980605, end: 19980605

REACTIONS (2)
  - Lip swelling [Unknown]
  - Erythema [Unknown]

NARRATIVE: CASE EVENT DATE: 19980605
